FAERS Safety Report 16161985 (Version 2)
Quarter: 2019Q2

REPORT INFORMATION
  Report Type: Report from Study
  Country: US (occurrence: US)
  Receive Date: 20190405
  Receipt Date: 20190501
  Transmission Date: 20190711
  Serious: Yes (Other)
  Sender: FDA-Public Use
  Company Number: US-UCBSA-2019013303

PATIENT
  Sex: Female

DRUGS (2)
  1. LACOSAMIDE. [Suspect]
     Active Substance: LACOSAMIDE
     Indication: GENERALISED TONIC-CLONIC SEIZURE
     Dosage: 150 MG, 2X/DAY (BID)
  2. KEPPRA [Suspect]
     Active Substance: LEVETIRACETAM
     Indication: GENERALISED TONIC-CLONIC SEIZURE

REACTIONS (1)
  - Cardiac failure congestive [Unknown]
